FAERS Safety Report 14226421 (Version 1)
Quarter: 2017Q4

REPORT INFORMATION
  Report Type: Spontaneous
  Country: IT (occurrence: IT)
  Receive Date: 20171127
  Receipt Date: 20171127
  Transmission Date: 20180321
  Serious: Yes (Life-Threatening)
  Sender: FDA-Public Use
  Company Number: IT-FRESENIUS KABI-FK201710048

PATIENT
  Age: 2 Day
  Sex: Female
  Weight: 1 kg

DRUGS (1)
  1. INTRALIPID [Suspect]
     Active Substance: EGG PHOSPHOLIPIDS\GLYCERIN\SOYBEAN OIL
     Indication: PARENTERAL NUTRITION
     Route: 041
     Dates: start: 20170415, end: 20170415

REACTIONS (4)
  - Cardiac arrest neonatal [Recovered/Resolved with Sequelae]
  - Hyperglycaemia [Recovered/Resolved with Sequelae]
  - Acidosis [Recovered/Resolved with Sequelae]
  - Jaundice cholestatic [Recovered/Resolved with Sequelae]

NARRATIVE: CASE EVENT DATE: 20170415
